FAERS Safety Report 7148272-7 (Version None)
Quarter: 2010Q4

REPORT INFORMATION
  Report Type: 
  Country: None (occurrence: None)
  Receive Date: 20101209
  Receipt Date: 20101206
  Transmission Date: 20110411
  Serious: Yes (Other)
  Sender: FDA-Public Use
  Company Number: US-PFIZER INC-2010165584

PATIENT
  Sex: Male
  Weight: 76.6 kg

DRUGS (8)
  1. TYGACIL [Suspect]
     Indication: WOUND
     Dosage: 50 MG, 2X/DAY
     Route: 042
     Dates: start: 20101203, end: 20101204
  2. TYLENOL (CAPLET) [Concomitant]
     Indication: HEADACHE
     Dosage: UNK
  3. TYLENOL (CAPLET) [Concomitant]
     Indication: PAIN
  4. ASCORBIC ACID [Concomitant]
     Indication: PROMOTION OF WOUND HEALING
     Dosage: UNK
  5. DUONEB [Concomitant]
     Indication: DYSPNOEA
     Dosage: UNK, AS NEEDED
  6. ACETYLSALICYLIC ACID [Concomitant]
     Dosage: 325 MG, UNK
  7. DULCOLAX [Concomitant]
     Indication: CONSTIPATION
     Dosage: UNK, AS NEEDED
  8. BUPROPION [Concomitant]
     Indication: DEPRESSION
     Dosage: UNK

REACTIONS (1)
  - HYPOGLYCAEMIA [None]
